FAERS Safety Report 23931095 (Version 1)
Quarter: 2024Q2

REPORT INFORMATION
  Report Type: Spontaneous
  Country: US (occurrence: US)
  Receive Date: 20240603
  Receipt Date: 20240603
  Transmission Date: 20240716
  Serious: No
  Sender: FDA-Public Use
  Company Number: US-Kindeva Drug Delivery L.P.-2157683

PATIENT
  Sex: Female

DRUGS (1)
  1. ALBUTEROL SULFATE [Suspect]
     Active Substance: ALBUTEROL SULFATE
     Indication: Dyspnoea
     Route: 055

REACTIONS (4)
  - Nervousness [Recovered/Resolved]
  - Product dose omission issue [Unknown]
  - Device malfunction [Unknown]
  - Balance disorder [Recovered/Resolved]
